FAERS Safety Report 17117833 (Version 1)
Quarter: 2019Q4

REPORT INFORMATION
  Report Type: Spontaneous
  Country: CO (occurrence: CO)
  Receive Date: 20191205
  Receipt Date: 20191205
  Transmission Date: 20200122
  Serious: Yes (Other)
  Sender: FDA-Public Use
  Company Number: CO-PFIZER INC-2019369611

PATIENT
  Age: 56 Year
  Sex: Female
  Weight: 79 kg

DRUGS (3)
  1. REAMPLA [Suspect]
     Active Substance: PALBOCICLIB
     Indication: BREAST CANCER METASTATIC
     Dosage: 125 MG, 1X/DAY
     Route: 048
     Dates: start: 20181227
  2. FULVESTRANT. [Suspect]
     Active Substance: FULVESTRANT
     Dosage: 500 MG, MONTHLY
     Dates: start: 20181227
  3. ACETYLSALICYLIC ACID [Concomitant]
     Active Substance: ASPIRIN
     Dosage: UNK

REACTIONS (12)
  - Erythema [Not Recovered/Not Resolved]
  - Cyanosis [Unknown]
  - Vulvovaginal discomfort [Unknown]
  - Dysuria [Unknown]
  - Accident [Unknown]
  - Burning sensation [Not Recovered/Not Resolved]
  - Alopecia [Unknown]
  - Cystitis [Unknown]
  - Urine odour abnormal [Unknown]
  - Discomfort [Unknown]
  - Tibia fracture [Unknown]
  - Gingival swelling [Unknown]

NARRATIVE: CASE EVENT DATE: 201906
